FAERS Safety Report 8285286-8 (Version None)
Quarter: 2012Q2

REPORT INFORMATION
  Report Type: 
  Country: None (occurrence: None)
  Receive Date: 20120413
  Receipt Date: 20120329
  Transmission Date: 20120825
  Serious: Yes (Other)
  Sender: FDA-Public Use
  Company Number: CHPA2012US006398

PATIENT
  Sex: Female

DRUGS (4)
  1. EXCEDRIN TENSION HEADACHE CAPLETS [Suspect]
     Indication: HEADACHE
     Dosage: UNK DF, UNK
     Route: 048
  2. SUDAFED 12 HOUR [Concomitant]
     Indication: HYPERSENSITIVITY
     Dosage: 1 DF, QD PRN
  3. MULTI-VITAMINS [Concomitant]
     Dosage: UNK
  4. CALCIUM WITH VITAMIN D [Concomitant]
     Dosage: UNK

REACTIONS (1)
  - DRUG DEPENDENCE [None]
